FAERS Safety Report 8775550 (Version 7)
Quarter: 2013Q1

REPORT INFORMATION
  Report Type: Report from Study
  Country: JP (occurrence: JP)
  Receive Date: 20120911
  Receipt Date: 20130309
  Transmission Date: 20140127
  Serious: Yes (Death, Hospitalization)
  Sender: FDA-Public Use
  Company Number: JP-ABBOTT-12P-087-0957096-00

PATIENT
  Age: 78 Year
  Sex: Female

DRUGS (13)
  1. LIPACREON [Suspect]
     Route: 048
     Dates: start: 20120515, end: 20120821
  2. ESOMEPRAZOLE MAGNESIUM [Concomitant]
     Indication: GASTROOESOPHAGEAL REFLUX DISEASE
     Route: 048
     Dates: start: 20120417, end: 20120821
  3. ESOMEPRAZOLE MAGNESIUM [Concomitant]
     Indication: PANCREATIC CARCINOMA
  4. METOCLOPRAMIDE [Concomitant]
     Indication: PANCREATIC CARCINOMA
     Route: 048
     Dates: start: 20120821
  5. CELECOXIB [Concomitant]
     Indication: PANCREATIC CARCINOMA
     Route: 048
     Dates: start: 20120821
  6. FENTANYL CITRATE [Concomitant]
     Indication: PANCREATIC CARCINOMA
     Route: 062
     Dates: start: 20120821
  7. MAGNESIUM OXIDE [Concomitant]
     Indication: PRODUCT USED FOR UNKNOWN INDICATION
     Route: 048
     Dates: start: 20120626, end: 20120821
  8. MIRTAZAPINE [Concomitant]
     Indication: PRODUCT USED FOR UNKNOWN INDICATION
     Route: 048
     Dates: start: 20120713, end: 20120821
  9. ESCITALOPRAM OXALATE [Concomitant]
     Indication: PRODUCT USED FOR UNKNOWN INDICATION
     Route: 048
     Dates: start: 20120713, end: 20120821
  10. ETIZOLAM [Concomitant]
     Indication: PRODUCT USED FOR UNKNOWN INDICATION
     Route: 048
     Dates: start: 20120715, end: 20120821
  11. TECAFUR/CIMERACIL/OTERACIL POTASSIUM COMBINED DRUG [Concomitant]
     Indication: PANCREATIC CARCINOMA
     Route: 048
     Dates: start: 20120718, end: 20120731
  12. POLADREZINE [Concomitant]
     Indication: PRODUCT USED FOR UNKNOWN INDICATION
     Dates: start: 20120724, end: 20120821
  13. OXYCODONE HCL [Concomitant]
     Indication: PANCREATIC CARCINOMA
     Dosage: POWDER
     Route: 048
     Dates: start: 20120619, end: 20120821

REACTIONS (3)
  - Pancreatic carcinoma [Fatal]
  - Jaundice cholestatic [Recovering/Resolving]
  - Hypophagia [Unknown]
